FAERS Safety Report 6024589-4 (Version None)
Quarter: 2008Q4

REPORT INFORMATION
  Report Type: 
  Country: None (occurrence: None)
  Receive Date: 20081231
  Receipt Date: 20081114
  Transmission Date: 20090506
  Serious: No
  Sender: FDA-Public Use
  Company Number: US-BRISTOL-MYERS SQUIBB COMPANY-14407464

PATIENT
  Age: 65 Year
  Sex: Female

DRUGS (7)
  1. ORENCIA [Suspect]
     Indication: RHEUMATOID ARTHRITIS
     Dosage: IN OCT-2008 RECEIVED 4VIALS; MOST RECENT INFUSION: 28OCT08.
     Dates: start: 20071001
  2. BONIVA [Suspect]
     Dates: start: 20081028
  3. METHOTREXATE [Concomitant]
  4. ARAVA [Concomitant]
  5. CALCIUM + VITAMIN D [Concomitant]
  6. LISINOPRIL [Concomitant]
  7. FOLIC ACID [Concomitant]

REACTIONS (2)
  - PYREXIA [None]
  - RASH PRURITIC [None]
